FAERS Safety Report 18556864 (Version 1)
Quarter: 2020Q4

REPORT INFORMATION
  Report Type: Spontaneous
  Country: IT (occurrence: IT)
  Receive Date: 20201128
  Receipt Date: 20201128
  Transmission Date: 20210114
  Serious: Yes (Other)
  Sender: FDA-Public Use
  Company Number: NVSC2020IT314334

PATIENT
  Age: 56 Year
  Sex: Female
  Weight: 150 kg

DRUGS (2)
  1. ZARZIO 30 MU/0.5 ML SOLUTION FOR INJECTION OR INFUSION IN PRE-FILLED S [Suspect]
     Active Substance: FILGRASTIM
     Indication: PROPHYLAXIS
     Route: 058
     Dates: start: 20201015, end: 20201019
  2. DOCETAXEL. [Concomitant]
     Active Substance: DOCETAXEL
     Indication: BREAST CANCER
     Dosage: 200 MG
     Route: 065
     Dates: start: 20201013, end: 20201013

REACTIONS (1)
  - Febrile neutropenia [Unknown]

NARRATIVE: CASE EVENT DATE: 20201019
